FAERS Safety Report 24540444 (Version 1)
Quarter: 2024Q4

REPORT INFORMATION
  Report Type: Spontaneous
  Country: SE (occurrence: SE)
  Receive Date: 20241023
  Receipt Date: 20241023
  Transmission Date: 20250115
  Serious: Yes (Death)
  Sender: FRESENIUS KABI
  Company Number: SE-GRUNENTHAL-2024-126379

PATIENT
  Sex: Female

DRUGS (2)
  1. PROPOFOL [Suspect]
     Active Substance: PROPOFOL
     Indication: Product used for unknown indication
     Dosage: UNK
  2. FENTANYL [Suspect]
     Active Substance: FENTANYL
     Indication: Product used for unknown indication
     Dosage: UNK

REACTIONS (3)
  - Apnoea [Fatal]
  - Anaesthetic complication pulmonary [Fatal]
  - Incorrect dose administered [Unknown]
